FAERS Safety Report 19616753 (Version 1)
Quarter: 2021Q3

REPORT INFORMATION
  Report Type: Spontaneous
  Country: CA (occurrence: CA)
  Receive Date: 20210728
  Receipt Date: 20210728
  Transmission Date: 20211014
  Serious: Yes (Other)
  Sender: FDA-Public Use
  Company Number: CA-AUROBINDO-AUR-APL-2018-049734

PATIENT
  Age: 52 Year
  Sex: Female

DRUGS (8)
  1. QUETIAPINE. [Suspect]
     Active Substance: QUETIAPINE
     Indication: BIPOLAR II DISORDER
     Dosage: UNK
     Route: 065
  2. ZOPICLONE [Concomitant]
     Active Substance: ZOPICLONE
     Indication: BIPOLAR II DISORDER
     Dosage: 15 MILLIGRAM
     Route: 065
  3. LAMOTRIGINE TABLET [Suspect]
     Active Substance: LAMOTRIGINE
     Dosage: UNK
     Route: 065
  4. BUPROPION. [Concomitant]
     Active Substance: BUPROPION
     Indication: BIPOLAR II DISORDER
     Dosage: 300 MILLIGRAM
     Route: 065
  5. ESCITALOPRAM [Concomitant]
     Active Substance: ESCITALOPRAM OXALATE
     Indication: BIPOLAR II DISORDER
     Dosage: 10 MILLIGRAM
     Route: 065
  6. QUETIAPINE. [Concomitant]
     Active Substance: QUETIAPINE
     Indication: BIPOLAR II DISORDER
     Dosage: 150 MILLIGRAM
     Route: 065
  7. LITHIUM. [Concomitant]
     Active Substance: LITHIUM
     Indication: BIPOLAR II DISORDER
     Dosage: 450 MILLIGRAM
     Route: 065
  8. LAMOTRIGINE TABLET [Suspect]
     Active Substance: LAMOTRIGINE
     Indication: BIPOLAR II DISORDER
     Dosage: 300 MILLIGRAM
     Route: 065

REACTIONS (3)
  - Obsessive-compulsive disorder [Recovering/Resolving]
  - Off label use [Unknown]
  - Product use in unapproved indication [Unknown]

NARRATIVE: CASE EVENT DATE: 20190101
